FAERS Safety Report 8850150 (Version 1)
Quarter: 2012Q4

REPORT INFORMATION
  Report Type: 
  Country: US (occurrence: US)
  Receive Date: 20121019
  Receipt Date: 20121019
  Transmission Date: 20130627
  Serious: Yes (Disabling, Other)
  Sender: FDA-Public Use
  Company Number: US-GLAXOSMITHKLINE-A0997683A

PATIENT
  Age: 58 Year
  Sex: Male

DRUGS (9)
  1. VOTRIENT [Suspect]
     Indication: PRODUCT USED FOR UNKNOWN INDICATION
     Dosage: 800MG Per day
     Route: 048
     Dates: start: 20120501, end: 20121011
  2. ASPIRIN [Concomitant]
  3. MULTI VITAMIN [Concomitant]
  4. FISH OIL CAPSULES [Concomitant]
  5. VITAMIN B COMPLEX [Concomitant]
  6. HYDROCHLOROTHIAZIDE [Concomitant]
  7. FAMOTIDINE [Concomitant]
  8. IMODIUM AD [Concomitant]
  9. BLOOD TRANSFUSION [Concomitant]

REACTIONS (1)
  - Haemoglobin decreased [Unknown]
